FAERS Safety Report 4656586-5 (Version None)
Quarter: 2005Q2

REPORT INFORMATION
  Report Type: 
  Country: None (occurrence: None)
  Receive Date: 20050506
  Receipt Date: 20050418
  Transmission Date: 20051028
  Serious: Yes (Other)
  Sender: FDA-Public Use
  Company Number: FRP05000323

PATIENT
  Age: 72 Year
  Sex: Male

DRUGS (1)
  1. ACTONEL [Suspect]
     Indication: OSTEITIS DEFORMANS
     Dosage: 30 MG, DAILY, ORAL
     Route: 048
     Dates: start: 20050401

REACTIONS (5)
  - BILE DUCT OBSTRUCTION [None]
  - CHOLELITHIASIS [None]
  - GAMMA-GLUTAMYLTRANSFERASE INCREASED [None]
  - JAUNDICE [None]
  - NEOPLASM MALIGNANT [None]
